FAERS Safety Report 5632990-3 (Version None)
Quarter: 2008Q1

REPORT INFORMATION
  Report Type: 
  Country: None (occurrence: None)
  Receive Date: 20080214
  Receipt Date: 20080206
  Transmission Date: 20080703
  Serious: Yes (Other)
  Sender: FDA-Public Use
  Company Number: 144-21880-08011590

PATIENT
  Age: 78 Year
  Sex: Male
  Weight: 70 kg

DRUGS (4)
  1. REVLIMID [Suspect]
     Indication: MULTIPLE MYELOMA
     Dosage: 25 MG, DAILY, ORAL
     Route: 048
     Dates: start: 20080122, end: 20080128
  2. DEXAMETHASONE TAB [Concomitant]
  3. CLEXANE (HEPARIN-F-FRACTION, SODIUM SALT) [Concomitant]
  4. OMEPRAZOLE [Concomitant]

REACTIONS (4)
  - FACE OEDEMA [None]
  - FLUSHING [None]
  - PRURITUS [None]
  - RASH [None]
